FAERS Safety Report 8985332 (Version 1)
Quarter: 2012Q4

REPORT INFORMATION
  Report Type: 
  Country: CN (occurrence: CN)
  Receive Date: 20121226
  Receipt Date: 20121226
  Transmission Date: 20130627
  Serious: Yes (Hospitalization, Other)
  Sender: FDA-Public Use
  Company Number: PHHY2012CN117782

PATIENT
  Age: 54 Year
  Sex: Female

DRUGS (2)
  1. GLEEVEC [Suspect]
     Dosage: 400 mg, QD
     Route: 048
  2. GLEEVEC [Suspect]
     Dosage: 400 mg, UNK
     Route: 048
     Dates: start: 20120227

REACTIONS (15)
  - Mental disorder [Unknown]
  - Cyanosis [Unknown]
  - Pallor [Unknown]
  - Heart sounds abnormal [Unknown]
  - Respiratory rate increased [Unknown]
  - Palpitations [Unknown]
  - Flushing [Unknown]
  - Chest discomfort [Recovered/Resolved]
  - Metastases to liver [Unknown]
  - Blood pressure decreased [Unknown]
  - Pyrexia [Unknown]
  - Nausea [Unknown]
  - Pruritus [Unknown]
  - Rash [Unknown]
  - Oedema [Unknown]
